FAERS Safety Report 18531600 (Version 13)
Quarter: 2022Q2

REPORT INFORMATION
  Report Type: Spontaneous
  Country: CA (occurrence: CA)
  Receive Date: 20201123
  Receipt Date: 20220521
  Transmission Date: 20220721
  Serious: Yes (Hospitalization, Other)
  Sender: FDA-Public Use
  Company Number: CA-CELLTRION INC.-2020CA025676

PATIENT

DRUGS (17)
  1. INFLECTRA [Suspect]
     Active Substance: INFLIXIMAB-DYYB
     Indication: Colitis ulcerative
     Dosage: 300 MG, AT 0, 2, 6, THEN EVERY 8 WEEKS
     Route: 042
     Dates: start: 20200813, end: 20200922
  2. INFLECTRA [Suspect]
     Active Substance: INFLIXIMAB-DYYB
     Dosage: 300 MG, AT 0, 2, 6, THEN EVERY 8 WEEKS
     Route: 042
     Dates: start: 20200826
  3. INFLECTRA [Suspect]
     Active Substance: INFLIXIMAB-DYYB
     Dosage: 300 MG, AT 0, 2, 6, THEN EVERY 8 WEEKS
     Route: 042
     Dates: start: 20200922
  4. INFLECTRA [Suspect]
     Active Substance: INFLIXIMAB-DYYB
     Dosage: 300 MG , AT 0, 2, 6, THEN EVERY 8 WEEKS
     Route: 042
     Dates: start: 202011
  5. INFLECTRA [Suspect]
     Active Substance: INFLIXIMAB-DYYB
     Dosage: 10 MG/KG, FOR 1 DOSE (REINDUCTION WEEK 0)
     Route: 042
     Dates: start: 20201110, end: 20201110
  6. INFLECTRA [Suspect]
     Active Substance: INFLIXIMAB-DYYB
     Dosage: 5 MG/KG (300 MG) WEEK 2, THEN EVERY 4 WEEKS
     Route: 042
     Dates: start: 20201124
  7. INFLECTRA [Suspect]
     Active Substance: INFLIXIMAB-DYYB
     Dosage: 5 MG/KG (300 MG) WEEK 2, THEN EVERY 4 WEEKS
     Route: 042
     Dates: start: 20201223
  8. INFLECTRA [Suspect]
     Active Substance: INFLIXIMAB-DYYB
     Dosage: 5 MG/KG (300 MG) WEEK 2, THEN EVERY 4 WEEKS
     Route: 042
     Dates: start: 20210121
  9. INFLECTRA [Suspect]
     Active Substance: INFLIXIMAB-DYYB
     Dosage: 5 MG/KG (300 MG) WEEK 2, THEN EVERY 4 WEEKS
     Route: 042
     Dates: start: 20210218
  10. INFLECTRA [Suspect]
     Active Substance: INFLIXIMAB-DYYB
     Dosage: 5 MG/KG (300 MG) WEEK 2, THEN EVERY 4 WEEKS
     Route: 042
     Dates: start: 20210318
  11. INFLECTRA [Suspect]
     Active Substance: INFLIXIMAB-DYYB
     Dosage: 5 MG/KG (300 MG) WEEK 2, THEN EVERY 4 WEEKS
     Route: 042
     Dates: start: 20210423
  12. INFLECTRA [Suspect]
     Active Substance: INFLIXIMAB-DYYB
     Dosage: 300 MG WEEK 2, THEN EVERY 4 WEEKS
     Route: 042
     Dates: start: 20220104
  13. INFLECTRA [Suspect]
     Active Substance: INFLIXIMAB-DYYB
     Dosage: 300 MG WEEK 2, THEN EVERY 4 WEEKS
     Route: 042
     Dates: start: 20220202
  14. INFLECTRA [Suspect]
     Active Substance: INFLIXIMAB-DYYB
     Dosage: 300 MG WEEK 2, THEN EVERY 4 WEEKS
     Route: 042
     Dates: start: 20220401
  15. INFLECTRA [Suspect]
     Active Substance: INFLIXIMAB-DYYB
     Dosage: 300 MG WEEK 2, THEN EVERY 4 WEEKS
     Route: 042
     Dates: start: 20220510
  16. HYDROCORTISONE [Concomitant]
     Active Substance: HYDROCORTISONE
     Indication: Premedication
     Dosage: 100 MG
     Dates: start: 20200826, end: 20200826
  17. PREDNISONE [Concomitant]
     Active Substance: PREDNISONE
     Dosage: 1 DF
     Route: 065

REACTIONS (14)
  - Condition aggravated [Unknown]
  - Weight increased [Unknown]
  - Drug level decreased [Unknown]
  - Off label use [Unknown]
  - Off label use [Unknown]
  - Off label use [Unknown]
  - Intentional product use issue [Unknown]
  - Inappropriate schedule of product administration [Unknown]
  - Blood pressure systolic increased [Unknown]
  - Rhinorrhoea [Not Recovered/Not Resolved]
  - Cough [Not Recovered/Not Resolved]
  - Faecal calprotectin increased [Unknown]
  - Influenza like illness [Not Recovered/Not Resolved]
  - COVID-19 [Unknown]

NARRATIVE: CASE EVENT DATE: 20200826
